FAERS Safety Report 9294197 (Version 1)
Quarter: 2013Q1

REPORT INFORMATION
  Report Type: Spontaneous
  Country: US (occurrence: US)
  Receive Date: 20121227
  Receipt Date: 20121227
  Transmission Date: 20140127
  Serious: Yes (Other)
  Sender: FDA-Public Use
  Company Number: PHEH2011US011868

PATIENT
  Age: 82 Year
  Sex: Female
  Weight: 53 kg

DRUGS (8)
  1. EXJADE [Suspect]
     Indication: IRON OVERLOAD
     Route: 048
     Dates: start: 20110930, end: 20111011
  2. FUROSEMIDE (FUROSEMIDE) [Concomitant]
  3. ACETAMINOPHEN (PARACETAMOL) [Concomitant]
  4. GLIPIZIDE (GLIPIZIDE) [Concomitant]
  5. METOPROLOL (METOPROLOL) [Concomitant]
  6. LASIX (FUROSEMIDE) [Concomitant]
  7. HYDRALAZINE (HYDRALAZINE) [Concomitant]
  8. CODEINE W/PARACETAMOL (CODEINE, PARACETAMOL) [Concomitant]

REACTIONS (3)
  - Hepatic enzyme increased [None]
  - Alanine aminotransferase increased [None]
  - Aspartate aminotransferase increased [None]
